FAERS Safety Report 6369859-5 (Version None)
Quarter: 2009Q3

REPORT INFORMATION
  Report Type: 
  Country: None (occurrence: None)
  Receive Date: 20090923
  Receipt Date: 20070604
  Transmission Date: 20100115
  Serious: Yes (Other)
  Sender: FDA-Public Use
  Company Number: US-ASTRAZENECA-2006UW11838

PATIENT
  Age: 506 Month
  Sex: Female
  Weight: 73 kg

DRUGS (11)
  1. SEROQUEL [Suspect]
     Indication: BIPOLAR DISORDER
     Route: 048
     Dates: start: 20000101
  2. SEROQUEL [Suspect]
     Indication: HYPOMANIA
     Route: 048
     Dates: start: 20000101
  3. SEROQUEL [Suspect]
     Dosage: 100 MG-600 MG DAILY
     Route: 048
     Dates: start: 20010108
  4. SEROQUEL [Suspect]
     Dosage: 100 MG-600 MG DAILY
     Route: 048
     Dates: start: 20010108
  5. ZYPREXA [Suspect]
     Dates: start: 20000101
  6. HALDOL [Concomitant]
     Dates: start: 20000101, end: 20020101
  7. RISPERDAL [Concomitant]
     Dates: start: 20000101
  8. ZOLOFT [Concomitant]
     Dates: start: 20000101, end: 20050101
  9. NAVANE [Concomitant]
     Indication: PARANOIA
     Dates: start: 20010301, end: 20020809
  10. LITHIUM CARBONATE [Concomitant]
     Dosage: 600 - 1200 MG DAILY
     Dates: start: 20000807
  11. COGENTIN [Concomitant]
     Dosage: 1 - 2 MG DAILY
     Dates: start: 20000807

REACTIONS (3)
  - DIABETES MELLITUS [None]
  - DIABETES MELLITUS INADEQUATE CONTROL [None]
  - TYPE 2 DIABETES MELLITUS [None]
